FAERS Safety Report 16670311 (Version 4)
Quarter: 2019Q3

REPORT INFORMATION
  Report Type: Not Available
  Country: US (occurrence: US)
  Receive Date: 20190805
  Receipt Date: 20190926
  Transmission Date: 20191004
  Serious: Yes (Death, Other)
  Sender: FDA-Public Use
  Company Number: US-NEUROCRINE BIOSCIENCES INC.-2019NBI02130

PATIENT
  Age: 72 Year
  Sex: Male

DRUGS (11)
  1. ASPIRIN. [Concomitant]
     Active Substance: ASPIRIN
  2. PROTONIX [Concomitant]
     Active Substance: PANTOPRAZOLE SODIUM
  3. TRINTELLIX [Concomitant]
     Active Substance: VORTIOXETINE HYDROBROMIDE
  4. IRON [Concomitant]
     Active Substance: IRON
  5. ACETAMINOPHEN-HYDROCODONE [Concomitant]
     Active Substance: ACETAMINOPHEN\HYDROCODONE
  6. FOLIC ACID. [Concomitant]
     Active Substance: FOLIC ACID
  7. PRAVASTATIN. [Concomitant]
     Active Substance: PRAVASTATIN
  8. INGREZZA [Suspect]
     Active Substance: VALBENAZINE
     Indication: TARDIVE DYSKINESIA
     Route: 048
     Dates: start: 20190719
  9. SINGULAIR [Concomitant]
     Active Substance: MONTELUKAST SODIUM
  10. METOPROLOL. [Concomitant]
     Active Substance: METOPROLOL
  11. FOLBEE [Concomitant]
     Active Substance: CYANOCOBALAMIN\FOLIC ACID\PYRIDOXINE HYDROCHLORIDE

REACTIONS (4)
  - Dyspnoea [Unknown]
  - Therapeutic product effect incomplete [Unknown]
  - Death [Fatal]
  - Pancreatic carcinoma metastatic [Unknown]

NARRATIVE: CASE EVENT DATE: 2019
